FAERS Safety Report 5044556-7 (Version None)
Quarter: 2006Q2

REPORT INFORMATION
  Report Type: 
  Country: None (occurrence: None)
  Receive Date: 20060629
  Receipt Date: 20060616
  Transmission Date: 20061013
  Serious: Yes (Death, Life-Threatening, Hospitalization, Other)
  Sender: FDA-Public Use
  Company Number: 2006057181

PATIENT
  Age: 61 Year
  Sex: Female
  Weight: 51.8 kg

DRUGS (26)
  1. VFEND [Suspect]
     Indication: BRONCHOPULMONARY ASPERGILLOSIS
     Dosage: 400 MG (200 MG, 2 IN 1 D), INTRAVENOUS
     Route: 042
     Dates: start: 20060406, end: 20060502
  2. SULFAMETHOXAZOLE + TRIMETHOPRIM [Suspect]
     Indication: PNEUMOCYSTIS JIROVECI PNEUMONIA
     Dosage: 12 GRAM (3 GRAM, 4 IN 1 D), ORAL
     Route: 048
     Dates: start: 20060406, end: 20060517
  3. DORMICUM FOR INJECTION (MIDAZOLAM HYDROCHLORIDE) [Suspect]
     Indication: SEDATION
     Dosage: 50 MG (50 MG, 1 IN 1 D), INTRAVENOUS
     Route: 042
     Dates: start: 20060407, end: 20060517
  4. LEPETAN (BUPRENORPHINE HYDROCHLORIDE) [Suspect]
     Indication: PAIN
     Dosage: 1 MG (1 MG, 1 IN 1 D), INTRAVENOUS
     Route: 042
     Dates: start: 20060407, end: 20060517
  5. CARBENIN (BETAMIPRON, PANIPENEM) [Concomitant]
  6. MINOCYCLINE HCL [Concomitant]
  7. ALENDRONATE SODIUM [Concomitant]
  8. VIT K CAP [Concomitant]
  9. ZANTAC [Concomitant]
  10. IMURAN [Concomitant]
  11. CLEANAL (FUDOSTEINE) [Concomitant]
  12. CLARITHROMYCIN [Concomitant]
  13. LIPOVAS ^BANYU^ (SIMVASTATIN) [Concomitant]
  14. PASIL (PAZUFLOXACIN MESILATE) [Concomitant]
  15. SOLU-MEDROL [Concomitant]
  16. PREDNISOLONE [Concomitant]
  17. AZITHROMYCIN [Concomitant]
  18. MAGNESIUM OXIDE (MAGNESIUM OXIDE) [Concomitant]
  19. LEVOFLOXACIN [Concomitant]
  20. ALLOID (SODIUM ALGINATE) [Concomitant]
  21. MARZULENE S (LEVOGLUTAMIDE, SODIUM GUALENATE) [Concomitant]
  22. ENTERONON R (BIFIDOBACTERIUM BIFIDUM, LACTOBACILLUS ACIDOPHILUS, LACTO [Concomitant]
  23. FAMOTIDINE [Concomitant]
  24. PRIMPERAN TAB [Concomitant]
  25. PANTOL (DEXPANTHENOL) [Concomitant]
  26. KALIMATE (CALCIUM POLYSTYRENE SULFONATE) [Concomitant]

REACTIONS (9)
  - ALANINE AMINOTRANSFERASE INCREASED [None]
  - ASPARTATE AMINOTRANSFERASE INCREASED [None]
  - BLOOD ALKALINE PHOSPHATASE INCREASED [None]
  - BLOOD BILIRUBIN INCREASED [None]
  - DISSEMINATED INTRAVASCULAR COAGULATION [None]
  - GAMMA-GLUTAMYLTRANSFERASE INCREASED [None]
  - HEPATIC FUNCTION ABNORMAL [None]
  - PNEUMONIA [None]
  - RESPIRATORY DISORDER [None]
